FAERS Safety Report 16294053 (Version 1)
Quarter: 2019Q2

REPORT INFORMATION
  Report Type: Spontaneous
  Country: US (occurrence: US)
  Receive Date: 20190509
  Receipt Date: 20190509
  Transmission Date: 20190711
  Serious: No
  Sender: FDA-Public Use
  Company Number: US-ROCHE-2139042

PATIENT
  Sex: Male

DRUGS (14)
  1. LIPITOR [Concomitant]
     Active Substance: ATORVASTATIN CALCIUM
  2. LASIX [Concomitant]
     Active Substance: FUROSEMIDE
  3. LOSARTAN. [Concomitant]
     Active Substance: LOSARTAN
  4. HCTZ [Concomitant]
     Active Substance: HYDROCHLOROTHIAZIDE
  5. RANEXA [Concomitant]
     Active Substance: RANOLAZINE
  6. ESBRIET [Suspect]
     Active Substance: PIRFENIDONE
     Route: 048
     Dates: start: 20180511
  7. GABAPENTIN. [Concomitant]
     Active Substance: GABAPENTIN
  8. NEVIRAPINE. [Concomitant]
     Active Substance: NEVIRAPINE
  9. ESBRIET [Suspect]
     Active Substance: PIRFENIDONE
     Indication: IDIOPATHIC PULMONARY FIBROSIS
     Route: 048
     Dates: start: 20180505
  10. ESBRIET [Suspect]
     Active Substance: PIRFENIDONE
     Route: 048
     Dates: start: 20180510
  11. ASPIRIN [ACETYLSALICYLIC ACID] [Concomitant]
     Active Substance: ASPIRIN
  12. PLAVIX [Concomitant]
     Active Substance: CLOPIDOGREL BISULFATE
  13. ESBRIET [Suspect]
     Active Substance: PIRFENIDONE
     Route: 048
     Dates: start: 201805
  14. FLOMAX [Concomitant]
     Active Substance: TAMSULOSIN HYDROCHLORIDE

REACTIONS (13)
  - Abdominal distension [Unknown]
  - Gastric disorder [Unknown]
  - Diarrhoea [Unknown]
  - Cough [Unknown]
  - Dizziness [Unknown]
  - Abdominal pain upper [Unknown]
  - Nausea [Unknown]
  - Abdominal discomfort [Unknown]
  - Fatigue [Unknown]
  - Pruritus [Unknown]
  - Pain [Unknown]
  - Dyspnoea [Unknown]
  - Rash erythematous [Unknown]
